FAERS Safety Report 7729313-2 (Version None)
Quarter: 2011Q3

REPORT INFORMATION
  Report Type: 
  Country: None (occurrence: None)
  Receive Date: 20110831
  Receipt Date: 20110831
  Transmission Date: 20111222
  Serious: Yes (Hospitalization)
  Sender: FDA-Public Use
  Company Number: None

PATIENT
  Sex: Female
  Weight: 50.9 kg

DRUGS (2)
  1. ETOPOSIDE [Suspect]
     Dosage: 450 MG
  2. CISPLATIN [Suspect]
     Dosage: 113 MG

REACTIONS (3)
  - PULMONARY EMBOLISM [None]
  - HAEMOGLOBIN DECREASED [None]
  - PLATELET COUNT DECREASED [None]
